FAERS Safety Report 16384057 (Version 1)
Quarter: 2019Q2

REPORT INFORMATION
  Report Type: Spontaneous
  Country: AU (occurrence: AU)
  Receive Date: 20190603
  Receipt Date: 20190603
  Transmission Date: 20190711
  Serious: Yes (Other)
  Sender: FDA-Public Use
  Company Number: AU-APOTEX-2019AP015213

PATIENT
  Sex: Female

DRUGS (3)
  1. APO-FAMCICLOVIR [Suspect]
     Active Substance: FAMCICLOVIR
     Dosage: 1 DF, BID
     Route: 048
  2. CORALAN [Concomitant]
     Active Substance: IVABRADINE HYDROCHLORIDE
     Indication: PRODUCT USED FOR UNKNOWN INDICATION
     Dosage: UNK
     Route: 065
  3. APO-FAMCICLOVIR [Suspect]
     Active Substance: FAMCICLOVIR
     Indication: GENITAL HERPES
     Dosage: 2 DF, UNK (STAT)
     Route: 048

REACTIONS (9)
  - Anxiety [Not Recovered/Not Resolved]
  - Hyperacusis [Recovered/Resolved]
  - Confusional state [Recovered/Resolved]
  - Hallucination [Recovered/Resolved]
  - Cardiac flutter [Recovered/Resolved]
  - Nervousness [Recovered/Resolved]
  - Insomnia [Recovered/Resolved]
  - Feeling abnormal [Recovered/Resolved]
  - Asthenia [Recovered/Resolved]
